FAERS Safety Report 4923527-2 (Version None)
Quarter: 2006Q1

REPORT INFORMATION
  Report Type: 
  Country: None (occurrence: None)
  Receive Date: 20060221
  Receipt Date: 20060208
  Transmission Date: 20060701
  Serious: Yes (Death)
  Sender: FDA-Public Use
  Company Number: 221929

PATIENT
  Age: 59 Year
  Sex: Male
  Weight: 82.5 kg

DRUGS (2)
  1. RITUXAN                          (RITUXIMAB) [Suspect]
     Indication: LYMPHOMA
     Dosage: 375 MG/M2, Q4W, INTRAVENOUS
     Route: 042
     Dates: end: 20050601
  2. TPN                 (HYPERALIMENTATION) [Concomitant]

REACTIONS (2)
  - BRONCHIECTASIS [None]
  - PLEURAL EFFUSION [None]
